FAERS Safety Report 8833365 (Version 1)
Quarter: 2012Q4

REPORT INFORMATION
  Report Type: 
  Country: US (occurrence: US)
  Receive Date: 20121010
  Receipt Date: 20121010
  Transmission Date: 20130627
  Serious: No
  Sender: FDA-Public Use
  Company Number: US-009507513-1210USA000874

PATIENT
  Sex: Male

DRUGS (2)
  1. JANUMET [Suspect]
  2. KOMBIGLYZE XR [Suspect]
     Dosage: 52000 mg, UNK

REACTIONS (2)
  - Medication residue [Unknown]
  - Glycosylated haemoglobin increased [Unknown]
